FAERS Safety Report 21015228 (Version 3)
Quarter: 2022Q3

REPORT INFORMATION
  Report Type: Spontaneous
  Country: JP (occurrence: JP)
  Receive Date: 20220628
  Receipt Date: 20220704
  Transmission Date: 20221026
  Serious: Yes (Hospitalization)
  Sender: FDA-Public Use
  Company Number: JP-CHUGAI-2022023184

PATIENT
  Age: 31 Year
  Sex: Male
  Weight: 89.5 kg

DRUGS (2)
  1. ENSPRYNG [Suspect]
     Active Substance: SATRALIZUMAB-MWGE
     Indication: Neuromyelitis optica spectrum disorder
     Dosage: UNK, ONCE/2WEEKS
     Route: 058
     Dates: start: 20220407
  2. ENSPRYNG [Suspect]
     Active Substance: SATRALIZUMAB-MWGE
     Dosage: 120 MILLIGRAM, ONCE/4WEEKS
     Route: 058
     Dates: start: 20220512, end: 20220602

REACTIONS (5)
  - Pyrexia [Recovering/Resolving]
  - Rash [Recovering/Resolving]
  - Hepatic function abnormal [Recovering/Resolving]
  - Anaemia [Recovering/Resolving]
  - Palpitations [Unknown]

NARRATIVE: CASE EVENT DATE: 20220616
